FAERS Safety Report 16178948 (Version 10)
Quarter: 2020Q3

REPORT INFORMATION
  Report Type: Spontaneous
  Country: US (occurrence: US)
  Receive Date: 20190410
  Receipt Date: 20200917
  Transmission Date: 20201102
  Serious: Yes (Hospitalization, Other)
  Sender: FDA-Public Use
  Company Number: US-PFIZER INC-2019153104

PATIENT
  Age: 81 Year
  Sex: Female
  Weight: 65.77 kg

DRUGS (13)
  1. DILANTIN [Suspect]
     Active Substance: PHENYTOIN
     Indication: SEIZURE
     Dosage: 300 MG, DAILY
     Dates: start: 197609
  2. SERTRALINE [Concomitant]
     Active Substance: SERTRALINE HYDROCHLORIDE
     Indication: ANXIETY
     Dosage: 50 MG, 1X/DAY
     Dates: start: 1996
  3. LIPITOR [Concomitant]
     Active Substance: ATORVASTATIN CALCIUM
     Indication: BLOOD CHOLESTEROL ABNORMAL
     Dosage: 20 MG, DAILY
  4. HYDRODIURIL [Concomitant]
     Active Substance: HYDROCHLOROTHIAZIDE
     Indication: BLOOD PRESSURE ABNORMAL
     Dosage: 25 MG, 2X/DAY
  5. ATORVASTATIN [Concomitant]
     Active Substance: ATORVASTATIN
     Indication: BLOOD CHOLESTEROL INCREASED
     Dosage: 20 MG, 1X/DAY [40MG TABLETS BUT SHE SPLITS THEM IN HALF AS PRESCRIBED]
  6. DILANTIN [Suspect]
     Active Substance: PHENYTOIN
     Dosage: 300 MG, DAILY (100MG TABLET 3 TABLETS BY MOUTH AT BEDTIME)
  7. LORAZEPAM. [Concomitant]
     Active Substance: LORAZEPAM
     Indication: NEUROPATHY PERIPHERAL
     Dosage: 2 MG, 1X/DAY (NIGHT)
  8. METOPROLOL TARTRATE. [Concomitant]
     Active Substance: METOPROLOL TARTRATE
     Indication: HYPERTENSION
     Dosage: 10 MG, 2X/DAY
  9. DILANTIN [Suspect]
     Active Substance: PHENYTOIN
     Indication: INTRACRANIAL ANEURYSM
     Dosage: 300 MG, DAILY (THREE 100MG CAPSULES AT NIGHT)
     Route: 048
     Dates: start: 1978
  10. SERTRALINE [Concomitant]
     Active Substance: SERTRALINE HYDROCHLORIDE
     Indication: NEUROPATHY PERIPHERAL
     Dosage: 50 MG, DAILY
  11. DILANTIN [Suspect]
     Active Substance: PHENYTOIN
     Dosage: 300 MG, DAILY (100MG TABLET 3 TABLETS BY MOUTH AT BEDTIME)
     Route: 048
     Dates: start: 1978
  12. LORAZEPAM. [Concomitant]
     Active Substance: LORAZEPAM
     Indication: ANXIETY
  13. OMEPRAZOLE. [Concomitant]
     Active Substance: OMEPRAZOLE
     Dosage: 20 MG, UNK
     Dates: start: 2014

REACTIONS (15)
  - Malaise [Unknown]
  - Aphonia [Unknown]
  - Gait disturbance [Unknown]
  - Neoplasm progression [Unknown]
  - Thinking abnormal [Unknown]
  - Neoplasm malignant [Recovering/Resolving]
  - Feeling abnormal [Unknown]
  - Non-Hodgkin^s lymphoma [Unknown]
  - Eye disorder [Unknown]
  - Body height decreased [Unknown]
  - Dysphagia [Unknown]
  - Hypoacusis [Unknown]
  - Throat cancer [Unknown]
  - Cerebral disorder [Unknown]
  - Limb injury [Unknown]

NARRATIVE: CASE EVENT DATE: 201605
